FAERS Safety Report 4788121-5 (Version None)
Quarter: 2005Q3

REPORT INFORMATION
  Report Type: 
  Country: None (occurrence: None)
  Receive Date: 20050920
  Receipt Date: 20050629
  Transmission Date: 20060218
  Serious: Yes (Other)
  Sender: FDA-Public Use
  Company Number: PHEH2004US13017

PATIENT
  Age: 57 Year
  Sex: Female

DRUGS (1)
  1. FEMARA [Suspect]
     Indication: BREAST CANCER
     Dosage: 2.5 MG, QD
     Dates: start: 20020101

REACTIONS (7)
  - ARTHRALGIA [None]
  - ERYTHEMA [None]
  - HOT FLUSH [None]
  - HYPERHIDROSIS [None]
  - PAIN [None]
  - SKIN EXFOLIATION [None]
  - WEIGHT INCREASED [None]
